FAERS Safety Report 7326527-0 (Version None)
Quarter: 2011Q1

REPORT INFORMATION
  Report Type: 
  Country: None (occurrence: None)
  Receive Date: 20110222
  Receipt Date: 20110208
  Transmission Date: 20110831
  Serious: Yes (Hospitalization)
  Sender: FDA-Public Use
  Company Number: UTC-005145

PATIENT
  Age: 52 Year
  Sex: Female

DRUGS (2)
  1. REMODULIN (10 MICROGRAM, INJECTION FOR INFUSION) (TREPROSTINIL SODIUM) [Suspect]
     Indication: PULMONARY HYPERTENSION
     Dosage: 118.08 UG/KG (0.082 UG/KG, 1 IN 1 MIN), INTRAVENOUS
     Route: 042
     Dates: start: 20100209
  2. DIURETICS (DIURETICS) [Concomitant]

REACTIONS (1)
  - VERTIGO [None]
